FAERS Safety Report 10399811 (Version 1)
Quarter: 2014Q3

REPORT INFORMATION
  Report Type: Spontaneous
  Country: US (occurrence: US)
  Receive Date: 20140821
  Receipt Date: 20140821
  Transmission Date: 20150326
  Serious: Yes (Hospitalization)
  Sender: FDA-Public Use
  Company Number: US-GLAXOSMITHKLINE-A0804245A

PATIENT
  Sex: Female

DRUGS (1)
  1. AVANDIA [Suspect]
     Active Substance: ROSIGLITAZONE MALEATE
     Indication: DIABETES MELLITUS
     Route: 048
     Dates: start: 2007

REACTIONS (6)
  - Right ventricular failure [Unknown]
  - Atrial flutter [Unknown]
  - Supraventricular tachycardia [Unknown]
  - Cardiomegaly [Unknown]
  - Cardiac failure congestive [Unknown]
  - Coronary artery disease [Unknown]
